FAERS Safety Report 10781976 (Version 1)
Quarter: 2015Q1

REPORT INFORMATION
  Report Type: Spontaneous
  Country: US (occurrence: None)
  Receive Date: 20150209
  Receipt Date: 20150209
  Transmission Date: 20150721
  Serious: Yes (Other)
  Sender: FDA-Public Use
  Company Number: None

PATIENT
  Age: 51 Year
  Sex: Male

DRUGS (16)
  1. METHYLPHENIDATE (RITALIN SR) [Concomitant]
  2. DIPHENHYDRAMINE (BENADRYL) [Concomitant]
  3. OLANZAPINE (ZYPREXA) [Concomitant]
  4. NITROFURANTOIN MONOHYDRATE (MACROBID) [Concomitant]
  5. SIMVASTATIN (ZOCOR) [Concomitant]
  6. CHLORHEXIDINE GLUCONATE (HIBICLENS) [Concomitant]
  7. PREDNISOLONE (SOLU-MEDROL) [Concomitant]
  8. FAMOTIDINE (PEPCID) [Concomitant]
  9. DOCUSATE SODIUM (COLACE) [Concomitant]
  10. SUMATRIPTAN (IMITREX) [Concomitant]
  11. NEOMYCIN-POLYMYXIN B-DEXAMETHASONE (MAXITROL) [Concomitant]
  12. ACETAMINIOPHEN (TYLENOL) [Concomitant]
  13. TUXIMAB (RITUXAN) [Concomitant]
  14. AMPYRA [Suspect]
     Active Substance: DALFAMPRIDINE
     Indication: MULTIPLE SCLEROSIS
     Route: 048
     Dates: start: 201102
  15. GENTAMICIN. [Concomitant]
     Active Substance: GENTAMICIN
  16. ACETAMINOPHEN-CODEINE (TYLENOL) [Concomitant]

REACTIONS (1)
  - Urinary tract infection staphylococcal [None]

NARRATIVE: CASE EVENT DATE: 20150125
